FAERS Safety Report 4415044-3 (Version None)
Quarter: 2004Q3

REPORT INFORMATION
  Report Type: 
  Country: None (occurrence: None)
  Receive Date: 20040729
  Receipt Date: 20040715
  Transmission Date: 20050211
  Serious: Yes (Hospitalization)
  Sender: FDA-Public Use
  Company Number: 232702K04USA

PATIENT
  Age: 57 Year
  Sex: Female

DRUGS (5)
  1. REBIF [Suspect]
     Indication: MULTIPLE SCLEROSIS
     Dosage: 44 MCG, SUBCUTANEOUS
     Route: 058
     Dates: start: 20040503
  2. AMITRIPTYLINE HCL [Concomitant]
  3. NEURONTIN [Concomitant]
  4. ^DEXTROL^ (ALL OTHER THERAPEUTIC PRODUCTS) [Concomitant]
  5. LEXAPRO [Concomitant]

REACTIONS (11)
  - ARTHRALGIA [None]
  - CATARACT [None]
  - DRY SKIN [None]
  - INJECTION SITE ERYTHEMA [None]
  - INJECTION SITE HAEMORRHAGE [None]
  - INJECTION SITE PAIN [None]
  - INTRAOCULAR PRESSURE INCREASED [None]
  - PNEUMONIA [None]
  - PRURITUS [None]
  - VISION BLURRED [None]
  - VITREOUS FLOATERS [None]
